FAERS Safety Report 19753439 (Version 1)
Quarter: 2021Q3

REPORT INFORMATION
  Report Type: Spontaneous
  Country: US (occurrence: US)
  Receive Date: 20210824
  Receipt Date: 20210824
  Transmission Date: 20211014
  Serious: Yes (Hospitalization)
  Sender: FDA-Public Use
  Company Number: None

PATIENT
  Age: 78 Year
  Sex: Male
  Weight: 106.9 kg

DRUGS (3)
  1. IRINOTECAN LIPOSOME (MM?398, ONIVYDE) [Suspect]
     Active Substance: IRINOTECAN HYDROCHLORIDE
     Dates: end: 20210729
  2. LEUCOVORIN CALCIUM. [Suspect]
     Active Substance: LEUCOVORIN CALCIUM
     Dates: end: 20210729
  3. 5?FLUOROURACIL (5?FU) [Suspect]
     Active Substance: FLUOROURACIL
     Dates: end: 20210729

REACTIONS (6)
  - Intra-abdominal fluid collection [None]
  - Blood glucose increased [None]
  - Deep vein thrombosis [None]
  - Pulmonary embolism [None]
  - Abdominal distension [None]
  - Constipation [None]

NARRATIVE: CASE EVENT DATE: 20210730
